FAERS Safety Report 9891960 (Version 1)
Quarter: 2014Q1

REPORT INFORMATION
  Report Type: Spontaneous
  Country: US (occurrence: None)
  Receive Date: 20140210
  Receipt Date: 20140210
  Transmission Date: 20141002
  Serious: Yes (Death)
  Sender: FDA-Public Use
  Company Number: 2014010083

PATIENT
  Age: 21 Year
  Sex: Female

DRUGS (5)
  1. ZOLPIDEM [Suspect]
  2. VENLAFAXINE (VENLAFAXINE) [Suspect]
  3. LAMOTRIGINE (LAMOTRIGINE) [Suspect]
  4. CLONAZEPAM (CLONAZEPAM) (CLONAZEPAM) [Suspect]
  5. ZIPRASIDONE [Suspect]

REACTIONS (3)
  - Exposure via ingestion [None]
  - Cardiac arrest [None]
  - Respiratory arrest [None]
